FAERS Safety Report 12581312 (Version 3)
Quarter: 2016Q3

REPORT INFORMATION
  Report Type: Spontaneous
  Country: US (occurrence: US)
  Receive Date: 20160721
  Receipt Date: 20160902
  Transmission Date: 20161109
  Serious: Yes (Hospitalization)
  Sender: FDA-Public Use
  Company Number: US-BAUSCH-BL-2016-017283

PATIENT
  Sex: Female

DRUGS (3)
  1. XENAZINE [Suspect]
     Active Substance: TETRABENAZINE
     Indication: CHOREA
     Dosage: ? TABLET OF 12.5MG IN THE MORNING AND ? TO 1 TABLET OF 12.5MG IN THE EVENING
     Route: 048
     Dates: start: 200907
  2. XENAZINE [Suspect]
     Active Substance: TETRABENAZINE
     Route: 048
     Dates: start: 20150318
  3. XENAZINE [Suspect]
     Active Substance: TETRABENAZINE
     Indication: HUNTINGTON^S DISEASE
     Dosage: 1 TABLET IN THE MORNING, ? TABLET AT NOON, AND ? TABLET AT NIGHT
     Route: 048
     Dates: start: 20090701

REACTIONS (3)
  - Drug dose omission [Unknown]
  - Withdrawal syndrome [Not Recovered/Not Resolved]
  - Drug administration error [Unknown]
